FAERS Safety Report 15201866 (Version 14)
Quarter: 2019Q3

REPORT INFORMATION
  Report Type: Report from Study
  Country: MY (occurrence: MY)
  Receive Date: 20180726
  Receipt Date: 20190926
  Transmission Date: 20191004
  Serious: Yes (Hospitalization, Other)
  Sender: FDA-Public Use
  Company Number: PHHY2018MY056448

PATIENT
  Age: 61 Year
  Sex: Female
  Weight: 73.4 kg

DRUGS (10)
  1. VOTRIENT [Suspect]
     Active Substance: PAZOPANIB HYDROCHLORIDE
     Indication: RENAL CELL CARCINOMA
     Dosage: 400 MG, UNK
     Route: 048
     Dates: start: 20180116, end: 20181010
  2. PERINDOPRIL [Concomitant]
     Active Substance: PERINDOPRIL
     Indication: PRODUCT USED FOR UNKNOWN INDICATION
     Dosage: 8 OT, UNK
     Route: 048
     Dates: start: 2012
  3. DIPHENHYDRAMINE. [Concomitant]
     Active Substance: DIPHENHYDRAMINE
     Indication: PRODUCT USED FOR UNKNOWN INDICATION
     Dosage: 10 OT, UNK
     Route: 048
     Dates: start: 20180712, end: 20180718
  4. BROMHEXINE HYDROCHLORIDE [Concomitant]
     Active Substance: BROMHEXINE HYDROCHLORIDE
     Indication: PRODUCTIVE COUGH
  5. VOTRIENT [Suspect]
     Active Substance: PAZOPANIB HYDROCHLORIDE
     Indication: METASTASES TO LYMPH NODES
     Dosage: 600 MG, UNK
     Route: 048
  6. VOTRIENT [Suspect]
     Active Substance: PAZOPANIB HYDROCHLORIDE
     Indication: METASTASES TO LUNG
     Dosage: 600 MG, UNK
     Route: 048
     Dates: start: 20181011
  7. LOPERAMIDE [Concomitant]
     Active Substance: LOPERAMIDE
     Indication: DIARRHOEA
     Dosage: 2 OT, UNK
     Route: 048
     Dates: start: 20180517, end: 20180613
  8. BROMHEXINE [Concomitant]
     Active Substance: BROMHEXINE
     Indication: PRODUCTIVE COUGH
     Dosage: 8 OT, UNK
     Route: 048
     Dates: start: 20180912, end: 20181011
  9. BROMHEXINE HYDROCHLORIDE [Concomitant]
     Active Substance: BROMHEXINE HYDROCHLORIDE
     Indication: COUGH
     Dosage: 8 OT, UNK
     Route: 048
     Dates: start: 20181023, end: 20181201
  10. METFORMIN [Concomitant]
     Active Substance: METFORMIN HYDROCHLORIDE
     Indication: PRODUCT USED FOR UNKNOWN INDICATION
     Dosage: 500 OT, UNK
     Route: 048
     Dates: start: 2011

REACTIONS (12)
  - Diabetic foot infection [Recovering/Resolving]
  - Vomiting [Recovered/Resolved]
  - Hypercalcaemia [Recovered/Resolved]
  - Large intestine polyp [Recovered/Resolved]
  - Acute kidney injury [Recovered/Resolved]
  - Pain in extremity [Recovering/Resolving]
  - Rectal haemorrhage [Recovered/Resolved]
  - Gastritis [Recovered/Resolved]
  - Oropharyngeal pain [Recovered/Resolved]
  - Diarrhoea [Recovered/Resolved]
  - Gastroenteritis [Recovered/Resolved]
  - Diabetic foot [Recovering/Resolving]

NARRATIVE: CASE EVENT DATE: 20180213
